FAERS Safety Report 5765594-2 (Version None)
Quarter: 2008Q2

REPORT INFORMATION
  Report Type: 
  Country: None (occurrence: None)
  Receive Date: 20080605
  Receipt Date: 20080526
  Transmission Date: 20081010
  Serious: Yes (Hospitalization)
  Sender: FDA-Public Use
  Company Number: E2090-00469-SPO-JP

PATIENT
  Age: 6 Year
  Sex: Male

DRUGS (5)
  1. ZONISAMIDE [Suspect]
     Indication: EPILEPSY
     Dosage: 40 GM, 1 IN 1 D, ORAL
     Route: 048
     Dates: start: 20080101, end: 20080101
  2. TEGRETOL [Concomitant]
  3. ASVERIN (TIPEPIDINE HIBENZATE) [Concomitant]
  4. MUCODYNE (CARBOCISTEINE) [Concomitant]
  5. CEFZON (CEFDINIR) [Concomitant]

REACTIONS (1)
  - STEVENS-JOHNSON SYNDROME [None]
